FAERS Safety Report 4897759-6 (Version None)
Quarter: 2006Q1

REPORT INFORMATION
  Report Type: 
  Country: None (occurrence: None)
  Receive Date: 20060201
  Receipt Date: 20060120
  Transmission Date: 20060701
  Serious: Yes (Hospitalization)
  Sender: FDA-Public Use
  Company Number: 2006GB00124

PATIENT
  Age: 44 Year
  Sex: Male

DRUGS (6)
  1. OMEPRAZOLE [Suspect]
     Indication: DYSPEPSIA
     Route: 048
     Dates: start: 20050531
  2. ZAPONEX [Suspect]
     Indication: SCHIZOPHRENIA
     Route: 048
     Dates: start: 20050112
  3. CLOZAPINE [Suspect]
     Dates: start: 20031020, end: 20050111
  4. RISPERIDONE [Concomitant]
     Indication: PSYCHOTIC DISORDER
     Route: 065
     Dates: start: 20050531
  5. VALPROATE SODIUM [Concomitant]
     Indication: MOOD SWINGS
     Route: 065
     Dates: start: 20050531
  6. OLANZAPINE [Concomitant]
     Indication: AGITATION
     Route: 065
     Dates: start: 20050815

REACTIONS (3)
  - LYMPHOCYTOSIS [None]
  - NEUTROPHILIA [None]
  - WHITE BLOOD CELL COUNT INCREASED [None]
